FAERS Safety Report 6138152-8 (Version None)
Quarter: 2009Q1

REPORT INFORMATION
  Report Type: 
  Country: None (occurrence: None)
  Receive Date: 20090331
  Receipt Date: 20090318
  Transmission Date: 20090719
  Serious: Yes (Death, Life-Threatening, Other)
  Sender: FDA-Public Use
  Company Number: GB-BAXTER-2009BH004129

PATIENT
  Age: 11 Year
  Sex: Male
  Weight: 37 kg

DRUGS (22)
  1. CYCLOPHOSPHAMIDE [Suspect]
     Indication: ACUTE LYMPHOCYTIC LEUKAEMIA RECURRENT
     Route: 042
     Dates: start: 20090105, end: 20090109
  2. CLOFARABINE [Suspect]
     Indication: ACUTE LYMPHOCYTIC LEUKAEMIA RECURRENT
     Route: 042
     Dates: start: 20090105, end: 20090109
  3. ETOPOSIDE [Suspect]
     Indication: ACUTE LYMPHOCYTIC LEUKAEMIA RECURRENT
     Route: 042
     Dates: start: 20090105, end: 20090109
  4. DEXAMETHASONE [Concomitant]
     Route: 048
     Dates: start: 20090101, end: 20090108
  5. LACTULOSE [Concomitant]
     Indication: CONSTIPATION
     Route: 048
     Dates: start: 20081231, end: 20090107
  6. LOPERAMIDE HCL [Concomitant]
     Indication: DIARRHOEA
     Route: 048
     Dates: start: 20090107, end: 20090113
  7. ATIVAN [Concomitant]
     Route: 048
     Dates: start: 20090106, end: 20090111
  8. METOCLOPRAMIDE [Concomitant]
     Indication: NAUSEA
     Dates: start: 20090101, end: 20090131
  9. AMBISOME [Concomitant]
     Indication: FEBRILE NEUTROPENIA
     Route: 042
     Dates: start: 20090112, end: 20090118
  10. AMILORIDE HYDROCHLORIDE [Concomitant]
     Indication: HYPOKALAEMIA
     Route: 048
     Dates: start: 20090112, end: 20090115
  11. AMOXICILLIN [Concomitant]
     Indication: PROPHYLAXIS
     Route: 048
     Dates: start: 20090111, end: 20090115
  12. CEFTAZIDIME [Concomitant]
     Indication: FEBRILE NEUTROPENIA
     Route: 042
  13. CIPROFLOXACIN [Concomitant]
     Indication: PROPHYLAXIS
     Route: 048
  14. CO-TRIMOXAZOLE [Concomitant]
     Indication: PROPHYLAXIS
     Route: 048
     Dates: start: 20090110, end: 20090131
  15. CYCLIZINE [Concomitant]
     Indication: NAUSEA
     Route: 042
     Dates: end: 20090113
  16. DIHYDROCODEINE BITARTRATE INJ [Concomitant]
     Indication: ANALGESIA
     Route: 048
  17. FRUSEMIDE [Concomitant]
     Indication: FLUID RETENTION
     Route: 042
  18. GENTAMICIN [Concomitant]
     Indication: FEBRILE NEUTROPENIA
     Route: 042
  19. MORPHINE [Concomitant]
     Indication: ANALGESIA
  20. NIFEDIPINE [Concomitant]
     Indication: HYPERTENSION
     Route: 048
     Dates: start: 20090112
  21. RASBURICASE [Concomitant]
     Route: 042
  22. OMEPRAZOLE [Concomitant]
     Indication: GASTROINTESTINAL DISORDER
     Route: 042
     Dates: start: 20090103, end: 20090131

REACTIONS (5)
  - HEADACHE [None]
  - HEPATITIS CHOLESTATIC [None]
  - HYPERTENSION [None]
  - NEUTROPENIC COLITIS [None]
  - SEPSIS [None]
